FAERS Safety Report 6714024-2 (Version None)
Quarter: 2010Q2

REPORT INFORMATION
  Report Type: 
  Country: None (occurrence: None)
  Receive Date: 20100504
  Receipt Date: 20100426
  Transmission Date: 20101027
  Serious: Yes (Other)
  Sender: FDA-Public Use
  Company Number: DE-1181326

PATIENT
  Age: 62 Year
  Sex: Male

DRUGS (3)
  1. TRAVATAN [Suspect]
     Dosage: OPHTHALMIC
     Route: 047
  2. ATACAND [Concomitant]
  3. SIMVASTATIN [Concomitant]

REACTIONS (1)
  - INTRAOCULAR PRESSURE INCREASED [None]
